FAERS Safety Report 5302026-2 (Version None)
Quarter: 2007Q2

REPORT INFORMATION
  Report Type: 
  Country: None (occurrence: None)
  Receive Date: 20070416
  Receipt Date: 20070416
  Transmission Date: 20071010
  Serious: Yes (Other)
  Sender: FDA-Public Use
  Company Number: None

PATIENT
  Age: 33 Year
  Sex: Female
  Weight: 68.0396 kg

DRUGS (2)
  1. EFFEXOR [Suspect]
     Indication: DEPRESSION
     Dosage: 1    DAILY   PO
     Route: 048
     Dates: start: 20070320, end: 20070406
  2. PAXIL [Suspect]
     Indication: DEPRESSION
     Dosage: 1  DAILY  PO
     Route: 048
     Dates: start: 20070412, end: 20070413

REACTIONS (9)
  - ANXIETY [None]
  - ASTHENOPIA [None]
  - CHLOROPSIA [None]
  - DISCOMFORT [None]
  - EYE PAIN [None]
  - EYE ROLLING [None]
  - NYSTAGMUS [None]
  - PHOTOPHOBIA [None]
  - VISION BLURRED [None]
